FAERS Safety Report 4872529-3 (Version None)
Quarter: 2005Q4

REPORT INFORMATION
  Report Type: 
  Country: None (occurrence: None)
  Receive Date: 20051230
  Receipt Date: 20051230
  Transmission Date: 20060501
  Serious: Yes (Other)
  Sender: FDA-Public Use
  Company Number: None

PATIENT
  Age: 70 Year
  Sex: Female
  Weight: 49.4421 kg

DRUGS (3)
  1. DOXORUBICIN 60 MG/M2 [Suspect]
     Indication: BREAST CANCER
     Dosage: 88 MG Q 2 WEEKS IV
     Route: 042
     Dates: start: 19980513, end: 19980701
  2. CYCLOPHOSPHAMIDE [Suspect]
     Indication: BREAST CANCER
     Dosage: 880 MG Q 2 WEEKS IV DRIP
     Route: 041
     Dates: start: 19980513, end: 19980701
  3. TAXOL [Concomitant]

REACTIONS (2)
  - COLON CANCER [None]
  - POLYP [None]
